FAERS Safety Report 6122431-4 (Version None)
Quarter: 2009Q1

REPORT INFORMATION
  Report Type: 
  Country: None (occurrence: None)
  Receive Date: 20090318
  Receipt Date: 20090311
  Transmission Date: 20090719
  Serious: Yes (Hospitalization)
  Sender: FDA-Public Use
  Company Number: FR-BAXTER-2009BH002786

PATIENT
  Age: 26 Year
  Sex: Female

DRUGS (13)
  1. ENDOXAN BAXTER [Suspect]
     Indication: ANAPLASTIC LARGE CELL LYMPHOMA T- AND NULL-CELL TYPES
     Route: 042
     Dates: start: 20081212, end: 20090109
  2. ADRIBLASTINE [Suspect]
     Indication: ANAPLASTIC LARGE CELL LYMPHOMA T- AND NULL-CELL TYPES
     Route: 042
     Dates: start: 20081212, end: 20090109
  3. VINDESINE [Suspect]
     Indication: ANAPLASTIC LARGE CELL LYMPHOMA T- AND NULL-CELL TYPES
     Route: 042
     Dates: start: 20081212, end: 20090113
  4. BLEOMYCIN GENERIC [Suspect]
     Indication: ANAPLASTIC LARGE CELL LYMPHOMA T- AND NULL-CELL TYPES
     Route: 042
     Dates: start: 20081212, end: 20090113
  5. SOLU-MEDROL [Suspect]
     Indication: ANAPLASTIC LARGE CELL LYMPHOMA T- AND NULL-CELL TYPES
     Route: 042
     Dates: start: 20081212, end: 20090113
  6. INIPOMP [Concomitant]
  7. PRIMPERAN [Concomitant]
  8. GAVISCON [Concomitant]
  9. NICOTINE [Concomitant]
  10. EPOETIN BETA [Concomitant]
  11. LENOGRASTIM [Concomitant]
     Dates: start: 20081217, end: 20081223
  12. LENOGRASTIM [Concomitant]
     Dates: start: 20081231, end: 20090106
  13. METHOTREXATE [Concomitant]
     Indication: ANAPLASTIC LARGE CELL LYMPHOMA T- AND NULL-CELL TYPES
     Route: 037
     Dates: start: 20081213

REACTIONS (6)
  - DYSPHAGIA [None]
  - FEBRILE BONE MARROW APLASIA [None]
  - MUCOSAL INFLAMMATION [None]
  - PALMAR-PLANTAR ERYTHRODYSAESTHESIA SYNDROME [None]
  - STAPHYLOCOCCAL INFECTION [None]
  - THIRST [None]
